FAERS Safety Report 9038754 (Version 1)
Quarter: 2013Q1

REPORT INFORMATION
  Report Type: Spontaneous
  Country: US (occurrence: None)
  Receive Date: 20130123
  Receipt Date: 20130123
  Transmission Date: 20140127
  Serious: No
  Sender: FDA-Public Use
  Company Number: None

PATIENT
  Age: 74 Year
  Sex: Male

DRUGS (1)
  1. IRBESARTAN [Suspect]
     Indication: HYPERTENSION
     Route: 048
     Dates: start: 20130103, end: 20130111

REACTIONS (4)
  - Listless [None]
  - Discomfort [None]
  - Asthenia [None]
  - Product substitution issue [None]
